FAERS Safety Report 6045176-8 (Version None)
Quarter: 2009Q1

REPORT INFORMATION
  Report Type: 
  Country: None (occurrence: None)
  Receive Date: 20090115
  Receipt Date: 20090115
  Transmission Date: 20090719
  Serious: Yes (Other)
  Sender: FDA-Public Use
  Company Number: None

PATIENT
  Age: 54 Year
  Sex: Female

DRUGS (5)
  1. PERDIEM OVERNIGHT RELIEF PILLS (NCH) (SENNA GLYCOSIDES (CA SALTS OF PU [Suspect]
     Indication: CONSTIPATION
     Dosage: 45 MG QHS ORAL
     Route: 048
  2. DOCUSATE SODIUM (DOCUSATE SODIUM) [Suspect]
     Indication: CONSTIPATION
     Dosage: 4 PILLS QD ORAL
     Route: 048
  3. TOPAMAX [Concomitant]
  4. NEURONTIN [Concomitant]
  5. DRISTAN (CHLORPHENAMINE MALEATE, PARACETAMOL, PHENYLEPHRINE HYDROCHLOR [Concomitant]

REACTIONS (3)
  - CHRONIC SINUSITIS [None]
  - GASTROINTESTINAL TRACT MUCOSAL PIGMENTATION [None]
  - MIGRAINE [None]
